FAERS Safety Report 15427986 (Version 3)
Quarter: 2018Q4

REPORT INFORMATION
  Report Type: Spontaneous
  Country: NZ (occurrence: NZ)
  Receive Date: 20180926
  Receipt Date: 20181015
  Transmission Date: 20190204
  Serious: Yes (Death)
  Sender: FDA-Public Use
  Company Number: NZ-BEH-2018095007

PATIENT
  Age: 75 Year
  Sex: Male
  Weight: 80 kg

DRUGS (41)
  1. PHENYLEPHRIN                       /00003902/ [Concomitant]
     Dosage: 20 ?G, UNK
     Route: 065
     Dates: start: 20180108
  2. ADRENALIN                          /00003903/ [Concomitant]
     Dosage: 100 ?G, UNK
     Route: 065
     Dates: start: 20180108
  3. MORPHINE [Concomitant]
     Active Substance: MORPHINE
     Dosage: 1 MG/ML, UNK
     Route: 042
     Dates: start: 20180112
  4. MIDAZOLAM [Concomitant]
     Active Substance: MIDAZOLAM HYDROCHLORIDE
     Dosage: 5 MG/5 ML, UNK
     Route: 042
     Dates: start: 20180112
  5. MIDAZOLAM [Concomitant]
     Active Substance: MIDAZOLAM HYDROCHLORIDE
     Dosage: 30 MG/30 ML, UNK
     Route: 042
     Dates: start: 20180112
  6. PLATELETS [Concomitant]
     Active Substance: HUMAN PLATELET, ALLOGENIC
     Dosage: UNK
     Route: 065
     Dates: start: 20180110
  7. PROPOFOL. [Concomitant]
     Active Substance: PROPOFOL
     Dosage: 5 ML, UNK
     Route: 065
     Dates: start: 20180108
  8. SUXAMETHONIUM [Concomitant]
     Active Substance: SUCCINYLCHOLINE
     Dosage: 100 MG, UNK
     Route: 065
     Dates: start: 20180108
  9. MIDAZOLAM [Concomitant]
     Active Substance: MIDAZOLAM HYDROCHLORIDE
     Dosage: 2 MG, SINGLE BOLUS
     Route: 042
     Dates: start: 20180112
  10. ACTRAPID [Concomitant]
     Active Substance: INSULIN HUMAN
     Indication: DIABETES MELLITUS
     Dosage: 30 IU, UNK
     Route: 042
     Dates: start: 20180109, end: 20180112
  11. AMIODARONE [Concomitant]
     Active Substance: AMIODARONE
     Dosage: 400 MG/200 ML, UNK
     Route: 042
     Dates: start: 20180108
  12. CALCIUM CHLORIDE. [Concomitant]
     Active Substance: CALCIUM CHLORIDE
     Dosage: 10 MMOL, UNK
     Route: 042
     Dates: start: 20180108
  13. MORPHINE [Concomitant]
     Active Substance: MORPHINE
     Dosage: 2 ML, SINGLE BOLUS
     Route: 042
     Dates: start: 20180112
  14. CLARITHROMYCIN. [Concomitant]
     Active Substance: CLARITHROMYCIN
     Indication: LOWER RESPIRATORY TRACT INFECTION
     Dosage: 500 MG, UNK
     Route: 042
     Dates: start: 20180108, end: 20180109
  15. CEFTRIAXONE. [Concomitant]
     Active Substance: CEFTRIAXONE
     Indication: LOWER RESPIRATORY TRACT INFECTION
     Dosage: 2 G, UNK
     Route: 042
     Dates: start: 20180108, end: 20180112
  16. RANITIDINE. [Concomitant]
     Active Substance: RANITIDINE
     Indication: PROPHYLAXIS
     Dosage: 50 MG, UNK
     Route: 042
     Dates: start: 20180109, end: 20180112
  17. PLATELETS [Concomitant]
     Active Substance: HUMAN PLATELET, ALLOGENIC
     Dosage: UNK
     Route: 065
     Dates: start: 20180108
  18. FENTANYL. [Concomitant]
     Active Substance: FENTANYL
     Dosage: 200 ?G, UNK
     Route: 065
     Dates: start: 20180108
  19. PLATELETS [Concomitant]
     Active Substance: HUMAN PLATELET, ALLOGENIC
     Dosage: UNK
     Route: 065
     Dates: start: 20180108
  20. CALCIUM GLUCONATE. [Concomitant]
     Active Substance: CALCIUM GLUCONATE
     Dosage: 2.2 MMOL, UNK
     Route: 042
     Dates: start: 20180108
  21. DEXTROSE. [Concomitant]
     Active Substance: DEXTROSE
     Dosage: 50 ML, UNK
     Route: 065
     Dates: start: 20170109
  22. MORPHINE [Concomitant]
     Active Substance: MORPHINE
     Dosage: 10 MG/10 ML, UNK
     Route: 042
     Dates: start: 20180112
  23. PLATELETS [Concomitant]
     Active Substance: HUMAN PLATELET, ALLOGENIC
     Dosage: UNK
     Route: 065
     Dates: start: 20180110
  24. PRIVIGEN [Suspect]
     Active Substance: HUMAN IMMUNOGLOBULIN G
     Indication: THROMBOCYTOPENIA
     Dosage: 80 G/800 ML, SINGLE
     Route: 065
     Dates: start: 20180108
  25. BISOPROLOL [Concomitant]
     Active Substance: BISOPROLOL
     Indication: BLOOD PRESSURE MANAGEMENT
     Dosage: 2.5 MG, BID
     Route: 048
     Dates: start: 20180112, end: 20180112
  26. PLATELETS [Concomitant]
     Active Substance: HUMAN PLATELET, ALLOGENIC
     Dosage: UNK
     Route: 065
     Dates: start: 20180108
  27. ADRENALIN                          /00003903/ [Concomitant]
     Dosage: 1 MG, UNK
     Route: 065
     Dates: start: 20180108
  28. CALCIUM CHLORIDE. [Concomitant]
     Active Substance: CALCIUM CHLORIDE
     Dosage: 10 MMOL, UNK
     Route: 042
     Dates: start: 20180109
  29. MORPHINE [Concomitant]
     Active Substance: MORPHINE
     Dosage: 50 MG/50 ML, UNK
     Route: 042
     Dates: start: 20180112
  30. MORPHINE [Concomitant]
     Active Substance: MORPHINE
     Dosage: 50 MG/50 ML, UNK
     Route: 042
     Dates: start: 20180112, end: 20180112
  31. MIDAZOLAM [Concomitant]
     Active Substance: MIDAZOLAM HYDROCHLORIDE
     Dosage: 2 MG, SINGLE BOLUS
     Route: 042
     Dates: start: 20180112
  32. MIDAZOLAM [Concomitant]
     Active Substance: MIDAZOLAM HYDROCHLORIDE
     Dosage: 2 MG, SINGLE
     Route: 042
     Dates: start: 20180112
  33. MIDAZOLAM [Concomitant]
     Active Substance: MIDAZOLAM HYDROCHLORIDE
     Dosage: 2 MG, SINGLE
     Route: 042
     Dates: start: 20180112
  34. ACTRAPID [Concomitant]
     Active Substance: INSULIN HUMAN
     Dosage: 10 IU, UNK
     Route: 065
     Dates: start: 20170109
  35. PRIVIGEN [Suspect]
     Active Substance: HUMAN IMMUNOGLOBULIN G
     Indication: IMMUNE THROMBOCYTOPENIC PURPURA
  36. TRANEXAMIC ACID. [Concomitant]
     Active Substance: TRANEXAMIC ACID
     Indication: IMMUNE THROMBOCYTOPENIC PURPURA
     Dosage: 1 G, SINGLE
     Route: 042
     Dates: start: 20180107
  37. TRANEXAMIC ACID. [Concomitant]
     Active Substance: TRANEXAMIC ACID
     Indication: HAEMORRHAGE
     Dosage: 1 G, SINGLE
     Route: 042
     Dates: start: 20180108
  38. ACTRAPID [Concomitant]
     Active Substance: INSULIN HUMAN
     Dosage: 10 IU/50 ML, TOT
     Route: 065
     Dates: start: 20170109
  39. PHENYLEPHRIN                       /00003902/ [Concomitant]
     Dosage: 20 ?G, UNK
     Route: 065
     Dates: start: 20180108
  40. MORPHINE [Concomitant]
     Active Substance: MORPHINE
     Dosage: 10 MG/10 ML, UNK
     Route: 042
     Dates: start: 20180112
  41. MIDAZOLAM [Concomitant]
     Active Substance: MIDAZOLAM HYDROCHLORIDE
     Dosage: 2 MG, SINGLE BOLUS
     Route: 042
     Dates: start: 20180112

REACTIONS (1)
  - Ischaemic stroke [Fatal]

NARRATIVE: CASE EVENT DATE: 20180112
